FAERS Safety Report 10880963 (Version 1)
Quarter: 2015Q1

REPORT INFORMATION
  Report Type: Spontaneous
  Country: BE (occurrence: BE)
  Receive Date: 20150303
  Receipt Date: 20150303
  Transmission Date: 20150721
  Serious: Yes (Other)
  Sender: FDA-Public Use
  Company Number: BE-RANBAXY-2015R1-93574

PATIENT
  Age: 11 Year
  Sex: Male

DRUGS (1)
  1. FLUOXETINE [Suspect]
     Active Substance: FLUOXETINE\FLUOXETINE HYDROCHLORIDE
     Indication: AUTISM SPECTRUM DISORDER
     Dosage: UNK
     Route: 065

REACTIONS (3)
  - Petit mal epilepsy [Unknown]
  - Confusional state [Unknown]
  - Anxiety [Unknown]
